FAERS Safety Report 6897721-8 (Version None)
Quarter: 2010Q3

REPORT INFORMATION
  Report Type: 
  Country: None (occurrence: None)
  Receive Date: 20100802
  Receipt Date: 20070711
  Transmission Date: 20110219
  Serious: No
  Sender: FDA-Public Use
  Company Number: US-PFIZER INC-2007056471

PATIENT
  Sex: Female
  Weight: 100 kg

DRUGS (8)
  1. LYRICA [Suspect]
     Indication: HYPOAESTHESIA
     Dates: start: 20070621
  2. LYRICA [Suspect]
     Dates: start: 20070628
  3. SYNTHROID [Concomitant]
  4. LASIX [Concomitant]
  5. METFORMIN HCL [Concomitant]
  6. LISINOPRIL [Concomitant]
  7. ALL OTHER THERAPEUTIC PRODUCTS [Concomitant]
  8. INDOCIN [Concomitant]

REACTIONS (3)
  - DRUG INEFFECTIVE [None]
  - HYPOAESTHESIA [None]
  - SOMNOLENCE [None]
